FAERS Safety Report 15489918 (Version 1)
Quarter: 2018Q4

REPORT INFORMATION
  Report Type: Spontaneous
  Country: US (occurrence: US)
  Receive Date: 20181011
  Receipt Date: 20181011
  Transmission Date: 20190205
  Serious: No
  Sender: FDA-Public Use
  Company Number: US-TEIKOKU PHARMA USA-TPU2018-00576

PATIENT
  Sex: Female
  Weight: 54.48 kg

DRUGS (1)
  1. LIDODERM [Suspect]
     Active Substance: LIDOCAINE
     Indication: PAIN
     Dosage: USED LIDODERM PATCHES ON HER NECK BONE, UPPER TRAPS, HIPS, AND BACK FOR PAIN

REACTIONS (3)
  - Body height decreased [Unknown]
  - Road traffic accident [Unknown]
  - Back pain [Unknown]
